FAERS Safety Report 25947684 (Version 1)
Quarter: 2025Q4

REPORT INFORMATION
  Report Type: Spontaneous
  Country: US (occurrence: None)
  Receive Date: 20251021
  Receipt Date: 20251021
  Transmission Date: 20260118
  Serious: Yes (Hospitalization)
  Sender: FDA-CTU
  Company Number: None

PATIENT
  Sex: Female

DRUGS (1)
  1. LENALIDOMIDE [Suspect]
     Active Substance: LENALIDOMIDE
     Indication: Plasma protein metabolism disorder
     Dosage: FREQUENCY : AS DIRECTED;?FREQ: TAKE 1 CAPSULE (15 MG TOTAL) BY MOUTH EVERY DAY FOR 21 DAYS EVERY 28 DAYS. SWALLOW WHOLE ?CAPSULE?
     Route: 048
     Dates: start: 20251014

REACTIONS (2)
  - Pulmonary embolism [None]
  - Therapy interrupted [None]
